FAERS Safety Report 8443935-5 (Version None)
Quarter: 2012Q2

REPORT INFORMATION
  Report Type: 
  Country: None (occurrence: None)
  Receive Date: 20120618
  Receipt Date: 20120611
  Transmission Date: 20120825
  Serious: Yes (Other)
  Sender: FDA-Public Use
  Company Number: ES-UCBSA-050016

PATIENT
  Age: 34 Year
  Sex: Female

DRUGS (2)
  1. DIAZEPAN [Concomitant]
     Indication: CONVULSION
     Dosage: NIGHTLY
  2. VIMPAT [Suspect]
     Indication: EPILEPSY
     Dosage: 100 MG/12 HOUR
     Route: 048
     Dates: start: 20110301

REACTIONS (2)
  - ABORTION INDUCED [None]
  - PREGNANCY [None]
